FAERS Safety Report 5835659-5 (Version None)
Quarter: 2008Q3

REPORT INFORMATION
  Report Type: 
  Country: None (occurrence: None)
  Receive Date: 20080806
  Receipt Date: 20080729
  Transmission Date: 20090109
  Serious: Yes (Hospitalization)
  Sender: FDA-Public Use
  Company Number: DK-ASTRAZENECA-2008SE03666

PATIENT
  Age: 17921 Day
  Sex: Male
  Weight: 110 kg

DRUGS (13)
  1. SEROQUEL [Suspect]
     Indication: BIPOLAR I DISORDER
     Dosage: DOSE 100 MG. USUALLY TWO EVERY EVENING.
     Route: 048
     Dates: start: 20050221, end: 20071104
  2. APOZEPAM [Suspect]
     Indication: SEDATIVE THERAPY
     Route: 048
     Dates: start: 20041001, end: 20050301
  3. TRUXAL [Suspect]
     Indication: SEDATIVE THERAPY
     Route: 048
     Dates: start: 20050504, end: 20050727
  4. RIVOTRIL [Suspect]
     Indication: SEDATIVE THERAPY
     Dosage: 0.5 MG. 1/2 - 3 TABLETS DAILY.
     Route: 048
     Dates: start: 20050808, end: 20080520
  5. ALOPAM [Suspect]
     Indication: SEDATIVE THERAPY
     Dosage: 15 MG. 1/2 TABLET THREE TIMES A DAY.
     Route: 048
     Dates: start: 20050905, end: 20051008
  6. LAMOTRIGIN -UNK MAH [Suspect]
     Indication: MENTAL DISORDER
     Dosage: 100 MG. 2 TABLETS IN THE MORNING AND 1 TABLET IN THE EVENING.
     Dates: start: 20060801, end: 20080326
  7. PROPRANOLOL ^DAK^ [Concomitant]
     Indication: HYPERTENSION
     Route: 048
     Dates: start: 19911015
  8. LANSOPRAZOL ^KRKA^ [Concomitant]
     Indication: GASTROOESOPHAGEAL REFLUX DISEASE
     Route: 048
     Dates: start: 19970914
  9. TERAZOSIN ^ALTERNOVA^ [Concomitant]
     Indication: HYPERTENSION
     Route: 048
     Dates: start: 19940920
  10. RHINOCORT [Concomitant]
     Indication: HYPERSENSITIVITY
     Dosage: 64 UG/DOSE. ONE SPRAY TWICE DAILY.
     Route: 045
     Dates: start: 19950820
  11. METFORMIN ^1A FARMA^ [Concomitant]
     Indication: TYPE 2 DIABETES MELLITUS
     Route: 048
     Dates: start: 20051120
  12. RAMIPRIL ^STADA^ [Concomitant]
     Indication: HYPERTENSION
     Route: 048
     Dates: start: 20060305
  13. SIMVASTATIN [Concomitant]
     Indication: HYPERCHOLESTEROLAEMIA
     Route: 048
     Dates: start: 20060305

REACTIONS (8)
  - AGGRESSION [None]
  - ANXIETY [None]
  - DRUG INEFFECTIVE [None]
  - DRY MOUTH [None]
  - FATIGUE [None]
  - INCREASED APPETITE [None]
  - OEDEMA PERIPHERAL [None]
  - PERSONALITY CHANGE [None]
